FAERS Safety Report 23468072 (Version 3)
Quarter: 2024Q1

REPORT INFORMATION
  Report Type: Report from Study
  Country: RO (occurrence: RO)
  Receive Date: 20240201
  Receipt Date: 20240216
  Transmission Date: 20240410
  Serious: Yes (Hospitalization, Disabling, Other)
  Sender: FDA-Public Use
  Company Number: RO-ABBVIE-5611012

PATIENT
  Age: 77 Year
  Sex: Male

DRUGS (2)
  1. CARBIDOPA\LEVODOPA [Suspect]
     Active Substance: CARBIDOPA\LEVODOPA
     Indication: Parkinson^s disease
     Dosage: DM=6.30 DC=3.10 ED=0.50 NRED=2; DMN=0.00 DCN=0.00 EDN=0.00 NREDN=0
     Route: 050
     Dates: start: 20170927
  2. CARBIDOPA\LEVODOPA [Suspect]
     Active Substance: CARBIDOPA\LEVODOPA

REACTIONS (19)
  - Intestinal dilatation [Recovering/Resolving]
  - Vomiting [Recovering/Resolving]
  - Decreased appetite [Recovering/Resolving]
  - Constipation [Recovering/Resolving]
  - Discoloured vomit [Recovering/Resolving]
  - Adrenal adenoma [Not Recovered/Not Resolved]
  - Cough [Recovering/Resolving]
  - Ileus [Recovering/Resolving]
  - Prostate cancer [Not Recovered/Not Resolved]
  - Decubitus ulcer [Recovering/Resolving]
  - Benign prostatic hyperplasia [Not Recovered/Not Resolved]
  - Colitis ischaemic [Recovering/Resolving]
  - Interstitial lung disease [Recovering/Resolving]
  - Pulmonary fibrosis [Recovering/Resolving]
  - Bedridden [Recovering/Resolving]
  - Dementia [Not Recovered/Not Resolved]
  - Somnolence [Recovering/Resolving]
  - Patient uncooperative [Recovering/Resolving]
  - Combined pulmonary fibrosis and emphysema [Recovering/Resolving]

NARRATIVE: CASE EVENT DATE: 20240114
